FAERS Safety Report 21372791 (Version 2)
Quarter: 2022Q4

REPORT INFORMATION
  Report Type: Report from Study
  Country: ES (occurrence: ES)
  Receive Date: 20220924
  Receipt Date: 20221008
  Transmission Date: 20230113
  Serious: Yes (Life-Threatening)
  Sender: FDA-Public Use
  Company Number: ES-JNJFOC-20220911001

PATIENT
  Sex: Female

DRUGS (1)
  1. IMBRUVICA [Suspect]
     Active Substance: IBRUTINIB
     Indication: Chronic lymphocytic leukaemia
     Route: 048
     Dates: end: 20220907

REACTIONS (2)
  - Drug ineffective [Recovering/Resolving]
  - Off label use [Unknown]

NARRATIVE: CASE EVENT DATE: 20220905
